FAERS Safety Report 8025572-X (Version None)
Quarter: 2012Q1

REPORT INFORMATION
  Report Type: 
  Country: None (occurrence: None)
  Receive Date: 20120105
  Receipt Date: 20111229
  Transmission Date: 20120608
  Serious: Yes (Other)
  Sender: FDA-Public Use
  Company Number: US-TEVA-315599USA

PATIENT
  Sex: Female

DRUGS (2)
  1. TIZANIDINE HCL [Concomitant]
     Indication: MUSCLE SPASMS
     Dosage: 1-2 TABS PRN
     Route: 048
  2. COPAXONE [Suspect]
     Indication: MULTIPLE SCLEROSIS
     Dosage: 20 MILLIGRAM;
     Route: 058
     Dates: start: 20100426

REACTIONS (2)
  - MULTIPLE SCLEROSIS RELAPSE [None]
  - MUSCLE SPASMS [None]
